FAERS Safety Report 15422180 (Version 1)
Quarter: 2018Q3

REPORT INFORMATION
  Report Type: Spontaneous
  Country: JP (occurrence: JP)
  Receive Date: 20180924
  Receipt Date: 20180924
  Transmission Date: 20181010
  Serious: Yes (Other)
  Sender: FDA-Public Use
  Company Number: GXJP2018JP001493

PATIENT
  Sex: Male

DRUGS (1)
  1. WELL?BI TABLETS [Suspect]
     Active Substance: BISOPROLOL FUMARATE
     Indication: CARDIOVASCULAR EVENT PROPHYLAXIS
     Dosage: UNK
     Route: 048

REACTIONS (3)
  - Cough [Unknown]
  - Dyspnoea [Unknown]
  - Cardiac failure [Unknown]
